FAERS Safety Report 5109103-X (Version None)
Quarter: 2006Q3

REPORT INFORMATION
  Report Type: 
  Country: None (occurrence: None)
  Receive Date: 20060918
  Receipt Date: 20060829
  Transmission Date: 20061208
  Serious: Yes (Hospitalization, Other)
  Sender: FDA-Public Use
  Company Number: USA0510109947

PATIENT
  Age: 72 Year
  Sex: Male
  Weight: 106.1 kg

DRUGS (11)
  1. HUMULIN 70/30 [Suspect]
     Indication: DIABETES MELLITUS
     Dosage: 35 U, 2/D,
  2. INH (INH) [Concomitant]
  3. CYTOXAN [Concomitant]
  4. PREDNISONE TAB [Concomitant]
  5. FUROSEMIDE [Concomitant]
  6. AVANDIA [Concomitant]
  7. GLYBURIDE [Concomitant]
  8. CARDURA [Concomitant]
  9. DIGOXIN [Concomitant]
  10. DILTIAZEM [Concomitant]
  11. COZAAR [Concomitant]

REACTIONS (25)
  - ANAEMIA [None]
  - ANOREXIA [None]
  - ASTHENIA [None]
  - ATRIAL FIBRILLATION [None]
  - BLOOD GLUCOSE INCREASED [None]
  - DECREASED APPETITE [None]
  - DRUG TOXICITY [None]
  - FALSE POSITIVE LABORATORY RESULT [None]
  - GAIT DISTURBANCE [None]
  - HEADACHE [None]
  - HEPATOTOXICITY [None]
  - INSULIN RESISTANCE [None]
  - INTERSTITIAL LUNG DISEASE [None]
  - LUNG DISORDER [None]
  - MALAISE [None]
  - PNEUMONIA [None]
  - POSTNASAL DRIP [None]
  - PRODUCTIVE COUGH [None]
  - PROTEIN URINE PRESENT [None]
  - PULMONARY FIBROSIS [None]
  - SYNCOPE [None]
  - TOTAL LUNG CAPACITY DECREASED [None]
  - VASCULITIS [None]
  - VOMITING [None]
  - WEGENER'S GRANULOMATOSIS [None]
